FAERS Safety Report 5170408-8 (Version None)
Quarter: 2006Q4

REPORT INFORMATION
  Report Type: 
  Country: None (occurrence: None)
  Receive Date: 20061212
  Receipt Date: 20061130
  Transmission Date: 20070319
  Serious: Yes (Other)
  Sender: FDA-Public Use
  Company Number: CH-SANOFI-SYNTHELABO-A01200610415

PATIENT
  Age: 66 Year
  Sex: Male

DRUGS (3)
  1. OMED [Suspect]
     Indication: GASTROOESOPHAGEAL REFLUX DISEASE
     Route: 048
     Dates: start: 20051101, end: 20060801
  2. OMED [Suspect]
     Indication: OESOPHAGITIS
     Route: 048
     Dates: start: 20051101, end: 20060801
  3. XATRAL UNO [Suspect]
     Indication: PROSTATISM
     Dosage: UNK
     Route: 048
     Dates: start: 20060101, end: 20060801

REACTIONS (1)
  - SYSTEMIC LUPUS ERYTHEMATOSUS [None]
